FAERS Safety Report 5931834-X (Version None)
Quarter: 2008Q4

REPORT INFORMATION
  Report Type: 
  Country: None (occurrence: None)
  Receive Date: 20081027
  Receipt Date: 20081014
  Transmission Date: 20090506
  Serious: Yes (Death, Other)
  Sender: FDA-Public Use
  Company Number: DK-GENENTECH-270215

PATIENT
  Age: 40 Year
  Sex: Female

DRUGS (7)
  1. AVASTIN [Suspect]
     Indication: COLON CANCER
     Dosage: UNK
     Route: 042
     Dates: start: 20070730, end: 20080116
  2. IRINOTECAN HYDROCHLORIDE [Suspect]
     Indication: DRUG USE FOR UNKNOWN INDICATION
     Dosage: UNK
     Dates: start: 20070730
  3. IRINOTECAN HYDROCHLORIDE [Suspect]
     Dosage: UNK
  4. FLUOROURACIL [Suspect]
     Indication: DRUG USE FOR UNKNOWN INDICATION
     Dosage: UNK
     Dates: start: 20070730
  5. FLUOROURACIL [Suspect]
     Dosage: UNK
  6. LEUCOVORIN CALCIUM [Suspect]
     Indication: DRUG USE FOR UNKNOWN INDICATION
     Dosage: UNK
     Dates: start: 20070730
  7. LEUCOVORIN CALCIUM [Suspect]
     Dosage: UNK

REACTIONS (3)
  - LUNG DISORDER [None]
  - METASTASIS [None]
  - UTERINE HAEMORRHAGE [None]
